FAERS Safety Report 10489136 (Version 2)
Quarter: 2014Q4

REPORT INFORMATION
  Report Type: Spontaneous
  Country: US (occurrence: US)
  Receive Date: 20141002
  Receipt Date: 20141107
  Transmission Date: 20150528
  Serious: Yes (Other)
  Sender: FDA-Public Use
  Company Number: US-JNJFOC-20140925632

PATIENT
  Age: 70 Year
  Sex: Female
  Weight: 105.24 kg

DRUGS (12)
  1. ZETIA [Concomitant]
     Active Substance: EZETIMIBE
     Dates: start: 20140828
  2. LISINOPRIL. [Concomitant]
     Active Substance: LISINOPRIL
     Dates: start: 20140818
  3. SERTRALINE [Concomitant]
     Active Substance: SERTRALINE HYDROCHLORIDE
     Dates: start: 20130312
  4. PRANDIN [Concomitant]
     Active Substance: REPAGLINIDE
     Dates: start: 20140707
  5. METFORMIN [Concomitant]
     Active Substance: METFORMIN HYDROCHLORIDE
     Dates: start: 20140818
  6. LASIX [Concomitant]
     Active Substance: FUROSEMIDE
     Dates: start: 20140519
  7. ASPIRIN. [Concomitant]
     Active Substance: ASPIRIN
     Dates: start: 20140324
  8. INVOKANA [Suspect]
     Active Substance: CANAGLIFLOZIN
     Indication: TYPE 2 DIABETES MELLITUS
     Route: 048
     Dates: start: 20140828
  9. CARVEDILOL. [Concomitant]
     Active Substance: CARVEDILOL
     Route: 048
     Dates: start: 20140710
  10. DIGOX [Concomitant]
     Active Substance: DIGOXIN
     Route: 048
     Dates: start: 20140818
  11. NIASPAN [Concomitant]
     Active Substance: NIACIN
     Dates: start: 20140324
  12. SPIRIVA [Concomitant]
     Active Substance: TIOTROPIUM BROMIDE MONOHYDRATE
     Dates: start: 20140401

REACTIONS (1)
  - Swollen tongue [Recovered/Resolved]

NARRATIVE: CASE EVENT DATE: 20140829
